FAERS Safety Report 16013527 (Version 1)
Quarter: 2019Q1

REPORT INFORMATION
  Report Type: Spontaneous
  Country: US (occurrence: US)
  Receive Date: 20190227
  Receipt Date: 20190227
  Transmission Date: 20190418
  Serious: Yes (Hospitalization)
  Sender: FDA-Public Use
  Company Number: US-JNJFOC-20190236428

PATIENT
  Age: 56 Year
  Sex: Male

DRUGS (1)
  1. INVOKAMET [Suspect]
     Active Substance: CANAGLIFLOZIN\METFORMIN HYDROCHLORIDE
     Indication: PRODUCT USED FOR UNKNOWN INDICATION
     Route: 048

REACTIONS (6)
  - Osteomyelitis [Unknown]
  - Arthritis bacterial [Unknown]
  - Ulcer [Unknown]
  - Gas gangrene [Unknown]
  - Cellulitis [Unknown]
  - Foot amputation [Unknown]

NARRATIVE: CASE EVENT DATE: 201805
